FAERS Safety Report 17720312 (Version 2)
Quarter: 2020Q2

REPORT INFORMATION
  Report Type: Spontaneous
  Country: IT (occurrence: IT)
  Receive Date: 20200428
  Receipt Date: 20200501
  Transmission Date: 20200714
  Serious: Yes (Hospitalization)
  Sender: FDA-Public Use
  Company Number: NVSC2020IT113753

PATIENT
  Age: 79 Year
  Sex: Female

DRUGS (2)
  1. TAVER [Suspect]
     Active Substance: CARBAMAZEPINE
     Indication: ANXIETY
     Dosage: 10 MG
     Route: 048
     Dates: start: 20200128, end: 20200128
  2. QUETIAPINE. [Suspect]
     Active Substance: QUETIAPINE
     Indication: MENTAL DISORDER
     Dosage: 300 MG
     Route: 048
     Dates: start: 20200128, end: 20200128

REACTIONS (3)
  - Depressed level of consciousness [Unknown]
  - Medication error [Unknown]
  - Electrocardiogram QT prolonged [Unknown]

NARRATIVE: CASE EVENT DATE: 20200128
